FAERS Safety Report 14985419 (Version 1)
Quarter: 2018Q2

REPORT INFORMATION
  Report Type: Spontaneous
  Country: GB (occurrence: GB)
  Receive Date: 20180607
  Receipt Date: 20180607
  Transmission Date: 20180711
  Serious: Yes (Other)
  Sender: FDA-Public Use
  Company Number: GB-PFIZER INC-2018222429

PATIENT
  Age: 25 Year
  Sex: Female

DRUGS (1)
  1. SAYANA PRESS [Suspect]
     Active Substance: MEDROXYPROGESTERONE\MEDROXYPROGESTERONE ACETATE
     Indication: CONTRACEPTION
     Dosage: 104MG/0.65 ML
     Route: 058
     Dates: start: 20160324, end: 20160623

REACTIONS (2)
  - Administration site atrophy [Not Recovered/Not Resolved]
  - Administration site induration [Not Recovered/Not Resolved]

NARRATIVE: CASE EVENT DATE: 20160324
